FAERS Safety Report 9085658 (Version 2)
Quarter: 2013Q2

REPORT INFORMATION
  Report Type: Spontaneous
  Country: US (occurrence: US)
  Receive Date: 20130218
  Receipt Date: 20130409
  Transmission Date: 20140414
  Serious: No
  Sender: FDA-Public Use
  Company Number: US-BAYER-2013-019637

PATIENT
  Age: 22 Year
  Sex: Female
  Weight: 64.85 kg

DRUGS (1)
  1. MIRENA [Suspect]
     Indication: CONTRACEPTION
     Dosage: 20 MCG/24HR, CONT
     Route: 015
     Dates: start: 20121102, end: 20130201

REACTIONS (2)
  - Device expulsion [None]
  - Uterine pain [None]
